FAERS Safety Report 15227106 (Version 1)
Quarter: 2018Q3

REPORT INFORMATION
  Report Type: Report from Study
  Country: US (occurrence: US)
  Receive Date: 20180801
  Receipt Date: 20180801
  Transmission Date: 20181010
  Serious: Yes (Death, Life-Threatening, Hospitalization, Other)
  Sender: FDA-Public Use
  Company Number: US-BRISTOL-MYERS SQUIBB COMPANY-16509234

PATIENT
  Age: 85 Year
  Sex: Male
  Weight: 82.5 kg

DRUGS (14)
  1. IOPAMIDOL [Concomitant]
     Active Substance: IOPAMIDOL
     Indication: PRODUCT USED FOR UNKNOWN INDICATION
     Dosage: UNK
     Route: 042
  2. ASPIRIN                            /00002701/ [Suspect]
     Active Substance: ASPIRIN
     Indication: PROPHYLAXIS
     Dosage: 81 MG, QD
     Route: 048
  3. WARFARIN SODIUM. [Suspect]
     Active Substance: WARFARIN SODIUM
     Indication: DEEP VEIN THROMBOSIS
     Dosage: 4 MG, QD
     Route: 048
  4. SENOKOT?S [Concomitant]
     Active Substance: DOCUSATE SODIUM\SENNOSIDES
     Indication: IRRITABLE BOWEL SYNDROME
     Dosage: 8.6 MG, QD
     Route: 048
     Dates: start: 20120114, end: 20120114
  5. HEPARIN [Concomitant]
     Active Substance: HEPARIN SODIUM
     Indication: PRODUCT USED FOR UNKNOWN INDICATION
     Dosage: UNK
     Route: 042
     Dates: start: 20120113, end: 20120124
  6. BACITRACIN. [Concomitant]
     Active Substance: BACITRACIN
     Indication: PRODUCT USED FOR UNKNOWN INDICATION
     Dosage: UNK
     Route: 065
     Dates: start: 20120109, end: 20120109
  7. DEXTROSE IN LACTATED RINGER^S [Concomitant]
     Indication: PRODUCT USED FOR UNKNOWN INDICATION
     Dosage: 1000 ML, UNK
     Route: 042
     Dates: start: 20120109, end: 20120113
  8. DUONEB [Concomitant]
     Active Substance: ALBUTEROL SULFATE\IPRATROPIUM BROMIDE
     Indication: CHRONIC OBSTRUCTIVE PULMONARY DISEASE
     Dosage: .5 MG, UNK
     Route: 055
     Dates: start: 20120110, end: 20120113
  9. NORCO [Concomitant]
     Active Substance: ACETAMINOPHEN\HYDROCODONE BITARTRATE
     Indication: PRODUCT USED FOR UNKNOWN INDICATION
     Dosage: 325 MG, UNK
     Route: 048
     Dates: start: 20120110, end: 20120118
  10. VANCOMYCIN [Concomitant]
     Active Substance: VANCOMYCIN
     Indication: PROPHYLAXIS
     Dosage: 1000 MG, UNK
     Route: 042
     Dates: start: 20120110, end: 20120110
  11. AQUA MEPHYTON [Concomitant]
     Indication: HAEMORRHAGE
     Dosage: 5 MG, UNK
     Route: 042
     Dates: start: 20120108, end: 20120108
  12. NORMAL SALINE [Concomitant]
     Active Substance: SODIUM CHLORIDE
     Indication: PRODUCT USED FOR UNKNOWN INDICATION
     Dosage: 1000 ML, UNK
     Route: 042
     Dates: start: 20120108, end: 20120109
  13. COMBIVENT [Concomitant]
     Active Substance: ALBUTEROL SULFATE\IPRATROPIUM BROMIDE
     Indication: CHRONIC OBSTRUCTIVE PULMONARY DISEASE
     Dosage: ALSO TAKEN 10JAN2012?13JAN2012(4D) 0.5MG INH
     Route: 055
     Dates: start: 20120109, end: 20120110
  14. KEPPRA [Concomitant]
     Active Substance: LEVETIRACETAM
     Indication: PROPHYLAXIS
     Dosage: 1000MG VIA ORAL:12JAN12?19JAN12(8DAYS)
     Route: 042
     Dates: start: 20120109, end: 20120112

REACTIONS (6)
  - Facial bones fracture [Recovered/Resolved]
  - Cerebral infarction [Recovered/Resolved with Sequelae]
  - Subdural haematoma [Recovered/Resolved]
  - Death [Fatal]
  - Depression [Recovered/Resolved with Sequelae]
  - Fall [Recovered/Resolved]

NARRATIVE: CASE EVENT DATE: 20120108
